FAERS Safety Report 9406558 (Version 1)
Quarter: 2013Q3

REPORT INFORMATION
  Report Type: Spontaneous
  Country: FR (occurrence: FR)
  Receive Date: 20130718
  Receipt Date: 20130718
  Transmission Date: 20140515
  Serious: Yes (Hospitalization)
  Sender: FDA-Public Use
  Company Number: FR-ASTRAZENECA-2013SE52413

PATIENT
  Age: 32 Year
  Sex: Female

DRUGS (3)
  1. XEROQUEL [Suspect]
     Indication: BIPOLAR DISORDER
     Route: 048
  2. TERCIAN [Suspect]
     Indication: BIPOLAR DISORDER
     Route: 048
  3. LAMICTAL [Concomitant]

REACTIONS (2)
  - Confusional state [Recovering/Resolving]
  - Intentional drug misuse [Recovering/Resolving]
